FAERS Safety Report 24611788 (Version 1)
Quarter: 2024Q4

REPORT INFORMATION
  Report Type: Spontaneous
  Country: CN (occurrence: CN)
  Receive Date: 20241113
  Receipt Date: 20241113
  Transmission Date: 20250114
  Serious: Yes (Other)
  Sender: BIOCON
  Company Number: CN-BIOCON BIOLOGICS LIMITED-BBL2024008200

PATIENT

DRUGS (2)
  1. TRASTUZUMAB [Suspect]
     Active Substance: TRASTUZUMAB
     Indication: HER2 positive gastric cancer
     Dosage: UNK
     Route: 065
  2. SINTILIMAB [Concomitant]
     Active Substance: SINTILIMAB
     Indication: HER2 positive gastric cancer
     Dosage: UNK
     Route: 065

REACTIONS (1)
  - Chest discomfort [Unknown]
